FAERS Safety Report 18436683 (Version 5)
Quarter: 2021Q4

REPORT INFORMATION
  Report Type: Spontaneous
  Country: None (occurrence: US)
  Receive Date: 20201028
  Receipt Date: 20211123
  Transmission Date: 20220303
  Serious: No
  Sender: FDA-Public Use
  Company Number: US-AKCEA THERAPEUTICS-2020IS001383

PATIENT
  Age: 60 Year
  Sex: Female

DRUGS (2)
  1. TEGSEDI [Suspect]
     Active Substance: INOTERSEN SODIUM
     Indication: Hereditary neuropathic amyloidosis
     Route: 058
     Dates: start: 20190208
  2. DEVICE [Suspect]
     Active Substance: DEVICE

REACTIONS (9)
  - Creatinine urine abnormal [Unknown]
  - Protein urine present [Unknown]
  - Urine protein/creatinine ratio increased [Unknown]
  - Bacterial test positive [Unknown]
  - Aspartate aminotransferase abnormal [Unknown]
  - Alanine aminotransferase abnormal [Unknown]
  - Urine abnormality [Unknown]
  - Crystal urine present [Unknown]
  - Urinary casts [Unknown]

NARRATIVE: CASE EVENT DATE: 20200902
